FAERS Safety Report 10662568 (Version 1)
Quarter: 2014Q4

REPORT INFORMATION
  Report Type: Spontaneous
  Country: US (occurrence: None)
  Receive Date: 20141217
  Receipt Date: 20141217
  Transmission Date: 20150529
  Serious: Yes (Disabling)
  Sender: FDA-Public Use
  Company Number: None

PATIENT
  Age: 44 Year
  Sex: Female
  Weight: 76.2 kg

DRUGS (1)
  1. GABAPENTIN 600MG [Suspect]
     Active Substance: GABAPENTIN
     Indication: PAIN
     Dosage: 2 CAPSULE AT BEDTIME; ONCE DAILY
     Route: 048
     Dates: start: 20141210

REACTIONS (3)
  - Diarrhoea [None]
  - Nausea [None]
  - Dehydration [None]

NARRATIVE: CASE EVENT DATE: 20141210
